FAERS Safety Report 13652077 (Version 2)
Quarter: 2017Q2

REPORT INFORMATION
  Report Type: Report from Study
  Country: DE (occurrence: DE)
  Receive Date: 20170614
  Receipt Date: 20170622
  Transmission Date: 20170830
  Serious: Yes (Death, Other)
  Sender: FDA-Public Use
  Company Number: DE-TEVA-777801GER

PATIENT
  Age: 46 Year
  Sex: Male

DRUGS (8)
  1. PIRITRAMIDE [Suspect]
     Active Substance: PIRITRAMIDE
     Route: 065
  2. BISOPROLOL [Suspect]
     Active Substance: BISOPROLOL
     Route: 065
  3. PROPOFOL. [Suspect]
     Active Substance: PROPOFOL
     Indication: DRUG USE DISORDER
     Route: 065
  4. MORPHINE [Suspect]
     Active Substance: MORPHINE
     Route: 065
  5. TRAMADOL. [Suspect]
     Active Substance: TRAMADOL
     Route: 065
  6. DIAZEPAM. [Suspect]
     Active Substance: DIAZEPAM
     Route: 065
  7. RAMIPRIL. [Suspect]
     Active Substance: RAMIPRIL
     Route: 065
  8. CODEINE [Suspect]
     Active Substance: CODEINE
     Route: 065

REACTIONS (3)
  - Respiratory arrest [Fatal]
  - Completed suicide [Fatal]
  - Drug use disorder [Unknown]
